FAERS Safety Report 9729690 (Version 1)
Quarter: 2013Q4

REPORT INFORMATION
  Report Type: Spontaneous
  Country: US (occurrence: US)
  Receive Date: 20131204
  Receipt Date: 20131204
  Transmission Date: 20140711
  Serious: No
  Sender: FDA-Public Use
  Company Number: US-GILEAD-2009-0020916

PATIENT
  Age: 42 Year
  Sex: Male
  Weight: 112.49 kg

DRUGS (8)
  1. LETAIRIS [Suspect]
     Indication: PULMONARY ARTERIAL HYPERTENSION
  2. CIALIS [Concomitant]
  3. BYSTOLIC [Concomitant]
  4. LAMICTAL [Concomitant]
  5. WELLBUTRIN [Concomitant]
  6. LORTAB [Concomitant]
  7. JANUVIA [Concomitant]
  8. TESTOSTERONE [Concomitant]

REACTIONS (3)
  - Dizziness [Not Recovered/Not Resolved]
  - Agitation [Not Recovered/Not Resolved]
  - Drug interaction [Unknown]
